FAERS Safety Report 8794186 (Version 2)
Quarter: 2012Q4

REPORT INFORMATION
  Report Type: 
  Country: US (occurrence: US)
  Receive Date: 20120918
  Receipt Date: 20121002
  Transmission Date: 20130627
  Serious: Yes (Other)
  Sender: FDA-Public Use
  Company Number: US-BIOGENIDEC-2012BI037426

PATIENT
  Age: 59 Year
  Sex: Male

DRUGS (3)
  1. AVONEX [Suspect]
     Indication: MULTIPLE SCLEROSIS
     Route: 030
     Dates: start: 20020415
  2. AVONEX [Suspect]
     Indication: MULTIPLE SCLEROSIS
     Route: 030
     Dates: start: 20120810
  3. NEURONTIN [Concomitant]
     Indication: CONSTIPATION

REACTIONS (4)
  - Convulsion [Unknown]
  - Delirium [Recovered/Resolved]
  - Constipation [Unknown]
  - Influenza like illness [Recovered/Resolved]
